FAERS Safety Report 7001548-6 (Version None)
Quarter: 2010Q3

REPORT INFORMATION
  Report Type: 
  Country: None (occurrence: None)
  Receive Date: 20100920
  Receipt Date: 20100910
  Transmission Date: 20110219
  Serious: Yes (Other)
  Sender: FDA-Public Use
  Company Number: PHHY2010DE60862

PATIENT
  Age: 71 Year
  Sex: Male
  Weight: 108 kg

DRUGS (2)
  1. ZOMETA [Suspect]
     Indication: METASTASES TO BONE
     Dosage: 4 MG, UNK
     Route: 042
     Dates: start: 20080101, end: 20100801
  2. FLUOROURACIL [Concomitant]
     Indication: COLON CANCER
     Dosage: 5 G/ 1 G
     Route: 042
     Dates: start: 20100601

REACTIONS (1)
  - OSTEONECROSIS OF JAW [None]
